FAERS Safety Report 9064807 (Version 2)
Quarter: 2013Q1

REPORT INFORMATION
  Report Type: Report from Study
  Country: UA (occurrence: UA)
  Receive Date: 20130130
  Receipt Date: 20130219
  Transmission Date: 20140127
  Serious: Yes (Hospitalization)
  Sender: FDA-Public Use
  Company Number: UA-ROCHE-1184275

PATIENT
  Age: 62 Year
  Sex: Female
  Weight: 52 kg

DRUGS (34)
  1. BLINDED GDC-0941 [Suspect]
     Indication: NON-SMALL CELL LUNG CANCER
     Dosage: DATE OF MOST RECENT DOSE OF GDC-0941 PRIOR TO AE ONSET 17 JAN 2013
     Route: 048
     Dates: start: 20121212
  2. BEVACIZUMAB [Suspect]
     Indication: NON-SMALL CELL LUNG CANCER
     Dosage: DATE OF MOST RECENT DOSE OF BEVACIZUMAB PRIOR TO AE ONSET 04 JAN 2013, DOSE TAKEN 780 MG
     Route: 042
     Dates: start: 20121212
  3. PACLITAXEL [Suspect]
     Indication: NON-SMALL CELL LUNG CANCER
     Dosage: DATE OF MOST RECENT DOSE OF PACLITAXEL PRIOR TO AE ONSET 04 JAN 2013, DOSE 298 MG
     Route: 042
     Dates: start: 20121212
  4. CARBOPLATIN [Suspect]
     Indication: NON-SMALL CELL LUNG CANCER
     Dosage: DATE OF MOST RECENT DOSE OF CARBOPLATIN PRIOR TO AE ONSET 04 JAN 2013, DOSE 469 MG
     Route: 042
     Dates: start: 20121212
  5. ONDANSETRON [Concomitant]
     Indication: NAUSEA
     Route: 048
     Dates: start: 20121221, end: 20121223
  6. ONDANSETRON [Concomitant]
     Route: 042
     Dates: start: 20121224, end: 20121228
  7. ONDANSETRON [Concomitant]
     Route: 042
     Dates: start: 20130104, end: 20130104
  8. ONDANSETRON [Concomitant]
     Route: 042
     Dates: start: 20130105, end: 20130107
  9. NIMESULIDE [Concomitant]
     Indication: PYREXIA
     Route: 048
     Dates: start: 20121220, end: 20121228
  10. NIMESULIDE [Concomitant]
     Route: 048
     Dates: start: 20130104, end: 20130104
  11. DEXAMETHASONE [Concomitant]
     Indication: RASH
     Route: 030
     Dates: start: 20121224, end: 20121228
  12. DEXAMETHASONE [Concomitant]
     Route: 048
     Dates: start: 20121229, end: 20121231
  13. DEXAMETHASONE [Concomitant]
     Route: 042
     Dates: start: 20130104, end: 20130104
  14. DEXAMETHASONE [Concomitant]
     Route: 030
     Dates: start: 20130105, end: 20130107
  15. REAMBERIN [Concomitant]
     Indication: RASH
     Route: 042
     Dates: start: 20121224, end: 20121229
  16. REAMBERIN [Concomitant]
     Indication: PYREXIA
  17. DEXTROSE 5% WATER [Concomitant]
     Indication: PYREXIA
     Route: 042
     Dates: start: 20121224, end: 20121228
  18. DEXTROSE 5% WATER [Concomitant]
     Indication: RASH
  19. INSULIN HUMAN [Concomitant]
     Indication: RASH
     Dosage: 12UNIT
     Route: 058
     Dates: start: 20121224, end: 20121228
  20. INSULIN HUMAN [Concomitant]
     Indication: PYREXIA
  21. MANNITOL [Concomitant]
     Indication: PYREXIA
     Route: 042
     Dates: start: 20121224, end: 20121228
  22. MANNITOL [Concomitant]
     Indication: RASH
     Route: 042
     Dates: start: 20130105, end: 20130107
  23. METRONIDAZOLE [Concomitant]
     Indication: PYREXIA
     Route: 042
     Dates: start: 20121224, end: 20121228
  24. LEVOFLOXACIN [Concomitant]
     Indication: PYREXIA
     Route: 042
     Dates: start: 20121224, end: 20121228
  25. CHLOROPYRAMINE [Concomitant]
     Indication: RASH
     Route: 030
     Dates: start: 20121224, end: 20121231
  26. CHLOROPYRAMINE [Concomitant]
     Route: 042
     Dates: start: 20130104, end: 20130104
  27. CHLOROPYRAMINE [Concomitant]
     Route: 030
     Dates: start: 20130105, end: 20130107
  28. HYDROCORTISONE [Concomitant]
     Indication: RASH
     Dosage: TRANSDERMAL
     Route: 065
     Dates: start: 20121224, end: 20121231
  29. FILGRASTIM [Concomitant]
     Indication: LEUKOPENIA
     Route: 058
     Dates: start: 20121226, end: 20121226
  30. FILGRASTIM [Concomitant]
     Indication: NEUTROPENIA
  31. AMIODARONE [Concomitant]
     Indication: SINUS TACHYCARDIA
     Route: 042
     Dates: start: 20130104, end: 20130104
  32. AMIODARONE [Concomitant]
     Route: 048
     Dates: start: 20130105, end: 20130105
  33. FAMOTIDINE [Concomitant]
     Route: 042
     Dates: start: 20130104, end: 20130104
  34. NEUROVITAN (UKRAINE) [Concomitant]
     Indication: PERIPHERAL SENSORY NEUROPATHY
     Route: 048
     Dates: start: 20130108

REACTIONS (1)
  - Cellulitis [Recovered/Resolved with Sequelae]
